FAERS Safety Report 8200827-4 (Version None)
Quarter: 2012Q1

REPORT INFORMATION
  Report Type: 
  Country: None (occurrence: None)
  Receive Date: 20120312
  Receipt Date: 20120309
  Transmission Date: 20120608
  Serious: Yes (Other)
  Sender: FDA-Public Use
  Company Number: US-PFIZER INC-2012063639

PATIENT
  Age: 42 Year
  Sex: Female
  Weight: 109 kg

DRUGS (6)
  1. GEODON [Suspect]
     Dosage: 60 MG, ALTERNATE DAY
     Dates: start: 20120201
  2. GEODON [Suspect]
     Dosage: 60 MG, DAILY
     Dates: start: 20120101, end: 20120101
  3. ACETAMINOPHEN [Concomitant]
     Indication: HEADACHE
     Dosage: UNK
  4. GEODON [Suspect]
     Indication: HEARING IMPAIRED
     Dosage: 60 MG, 2X/DAY
     Dates: start: 20120101, end: 20120101
  5. ASPIRIN [Concomitant]
     Indication: HYPERTENSION
     Dosage: 325 MG, DAILY
  6. GEODON [Suspect]
     Indication: BIPOLAR DISORDER
     Dosage: 60 MG, DAILY
     Dates: start: 20120127, end: 20120101

REACTIONS (9)
  - NERVOUSNESS [None]
  - DRUG ADMINISTRATION ERROR [None]
  - STRESS [None]
  - BIPOLAR DISORDER [None]
  - HEART RATE INCREASED [None]
  - DRUG INTOLERANCE [None]
  - TREMOR [None]
  - HEARING IMPAIRED [None]
  - TONGUE DISORDER [None]
